FAERS Safety Report 19636910 (Version 2)
Quarter: 2022Q3

REPORT INFORMATION
  Report Type: Other
  Country: AU (occurrence: AU)
  Receive Date: 20210730
  Receipt Date: 20220926
  Transmission Date: 20221027
  Serious: Yes (Death, Hospitalization)
  Sender: FDA-Public Use
  Company Number: AU-TOLMAR, INC.-21AU027991

PATIENT
  Sex: Male

DRUGS (3)
  1. ELIGARD [Suspect]
     Active Substance: LEUPROLIDE ACETATE
     Indication: Prostate cancer
     Dosage: 45 MILLIGRAM, Q 6 MONTH
  2. ELIQUIS [Concomitant]
     Active Substance: APIXABAN
     Indication: Product used for unknown indication
  3. AMLODIPINE, VALSARTAN, HYDROCHLOROTHIAZIDE [Concomitant]
     Active Substance: AMLODIPINE BESYLATE\HYDROCHLOROTHIAZIDE\VALSARTAN
     Indication: Product used for unknown indication

REACTIONS (2)
  - Death [Fatal]
  - Malignant melanoma [Unknown]
